FAERS Safety Report 7204020-3 (Version None)
Quarter: 2010Q4

REPORT INFORMATION
  Report Type: 
  Country: None (occurrence: None)
  Receive Date: 20101230
  Receipt Date: 20101216
  Transmission Date: 20110411
  Serious: Yes (Other)
  Sender: FDA-Public Use
  Company Number: PHHY2010JP85332

PATIENT
  Age: 82 Year
  Sex: Male

DRUGS (3)
  1. LANSOPRAZOLE [Suspect]
     Indication: REFLUX OESOPHAGITIS
     Dosage: 30 MG, QD
     Route: 048
     Dates: start: 20050101
  2. TRIMEBUTINE [Concomitant]
     Indication: IRRITABLE BOWEL SYNDROME
  3. NSAID'S [Concomitant]

REACTIONS (8)
  - COLITIS COLLAGENOUS [None]
  - COLONOSCOPY [None]
  - DIARRHOEA [None]
  - EXCESSIVE GRANULATION TISSUE [None]
  - GASTROINTESTINAL INFLAMMATION [None]
  - GASTROINTESTINAL TRACT MUCOSAL DISCOLOURATION [None]
  - IRRITABLE BOWEL SYNDROME [None]
  - OEDEMA MUCOSAL [None]
